FAERS Safety Report 9339031 (Version 2)
Quarter: 2013Q2

REPORT INFORMATION
  Report Type: Spontaneous
  Country: US (occurrence: None)
  Receive Date: 20130524
  Receipt Date: 20130614
  Transmission Date: 20140414
  Serious: Yes (Other)
  Sender: FDA-Public Use
  Company Number: 2013034642

PATIENT
  Age: 41 Year
  Sex: Female
  Weight: 88.45 kg

DRUGS (22)
  1. PRIVIGEN (IMMUNE GLOBULIN INTRAVENOUS (HUMAN) 10% LIQUID) [Suspect]
     Indication: DERMATOMYOSITIS
     Dosage: 50 GM, 12X/MONTH, 10 GM OVER 2 TO 8HOURS EVERY THREE DAYS PER MONTH
     Route: 042
     Dates: start: 20130202, end: 20130202
  2. ACETAMINOPHEN (PARACETAMOL) [Concomitant]
  3. DIPHENHYDRAMINE HYDROCHLORIDE (DIPHENHYDRAMINE HYDROCHLORIDE) [Concomitant]
  4. HEPARIN (HEPARIN) [Concomitant]
  5. LIDOCAINE (LIDOCAINE) [Concomitant]
  6. SODIUM CHLORIDE [Concomitant]
  7. EPIPEN (EPINEPHRINE) [Concomitant]
  8. AMBIEN (ZOLPIDEM TARTRATE) [Concomitant]
  9. PREDNISONE (PREDNISONE) [Concomitant]
  10. ARMOUR THYROID (THYROID) [Concomitant]
  11. VIIBRYD (ALL OTHER THERAPEUTIC PRODUCTION) [Concomitant]
  12. CALCIUM D PANTITHENATE (CALCIUM D) [Concomitant]
  13. VITAMIN D3 (COLECALCIIEROL) [Concomitant]
  14. DIGESTIVE PROBIOTIC (LACTOBACILLUS REUTERI) [Concomitant]
  15. CALCIUM PLUS D (CALCIUM D3) [Concomitant]
  16. VITAMIN B COMPLEX (NICOTINAM. W/PYRIDOXI. HCL/RIBOL./THIAM.HCL) [Concomitant]
  17. BIOTIN (BIOTIN) [Concomitant]
  18. MINOCIN (MINOCYCLINE HYDROCHLORIDE) [Concomitant]
  19. DMSA POWDER (SUCCIMER) [Concomitant]
  20. LIDOCAINE/ PRILOCAINE (EMLA  /00675501/) [Concomitant]
  21. CLARITIN (LORATADINE) [Concomitant]
  22. PREDNISONE (PREDNISONE) [Concomitant]

REACTIONS (8)
  - Off label use [None]
  - Burning sensation [None]
  - Throat irritation [None]
  - Upper respiratory tract infection [None]
  - Mycoplasma infection [None]
  - Headache [None]
  - Infusion related reaction [None]
  - Chromaturia [None]
